FAERS Safety Report 6773446-4 (Version None)
Quarter: 2010Q2

REPORT INFORMATION
  Report Type: 
  Country: None (occurrence: None)
  Receive Date: 20100616
  Receipt Date: 20100603
  Transmission Date: 20101027
  Serious: Yes (Hospitalization)
  Sender: FDA-Public Use
  Company Number: TR-MERCK-1006TUR00002

PATIENT
  Age: 3 Month
  Sex: Male

DRUGS (4)
  1. CANCIDAS [Suspect]
     Indication: CANDIDIASIS
     Route: 041
  2. FLUCONAZOLE [Concomitant]
     Indication: CANDIDIASIS
     Route: 041
  3. AMPHOTERICIN B [Concomitant]
     Indication: CANDIDIASIS
     Route: 041
  4. FLUCYTOSINE [Concomitant]
     Indication: CANDIDIASIS
     Route: 041

REACTIONS (1)
  - DRUG INEFFECTIVE [None]
